FAERS Safety Report 9799535 (Version 1)
Quarter: 2014Q1

REPORT INFORMATION
  Report Type: Spontaneous
  Country: US (occurrence: None)
  Receive Date: 20140103
  Receipt Date: 20140103
  Transmission Date: 20141002
  Serious: No
  Sender: FDA-Public Use
  Company Number: None

PATIENT
  Sex: Male

DRUGS (1)
  1. HUMIRA 40 MG ABBVIE [Suspect]
     Indication: CROHN^S DISEASE
     Route: 058
     Dates: start: 20120711

REACTIONS (1)
  - Pain of skin [None]
